FAERS Safety Report 5831175-5 (Version None)
Quarter: 2008Q3

REPORT INFORMATION
  Report Type: 
  Country: None (occurrence: None)
  Receive Date: 20080801
  Receipt Date: 20080512
  Transmission Date: 20090109
  Serious: No
  Sender: FDA-Public Use
  Company Number: US-BRISTOL-MYERS SQUIBB COMPANY-14188007

PATIENT
  Age: 81 Year
  Sex: Female
  Weight: 78 kg

DRUGS (17)
  1. COUMADIN [Suspect]
     Indication: ATRIAL FIBRILLATION
  2. WARFARIN SODIUM [Suspect]
     Indication: ATRIAL FIBRILLATION
  3. VERAPAMIL [Concomitant]
  4. ISOSORBIDE MONONITRATE [Concomitant]
  5. MONOPRIL [Concomitant]
  6. PROCARDIA [Concomitant]
  7. SYNTHROID [Concomitant]
  8. PRILOSEC [Concomitant]
  9. LASIX [Concomitant]
  10. ACTONEL [Concomitant]
  11. AROMASIN [Concomitant]
  12. NITROGLYCERIN [Concomitant]
     Route: 060
  13. COLACE [Concomitant]
  14. VITAMIN B-12 [Concomitant]
  15. CALCIUM [Concomitant]
  16. FOLIC ACID [Concomitant]
  17. MULTI-VITAMIN [Concomitant]

REACTIONS (1)
  - INTERNATIONAL NORMALISED RATIO FLUCTUATION [None]
